FAERS Safety Report 5845950-4 (Version None)
Quarter: 2008Q3

REPORT INFORMATION
  Report Type: 
  Country: None (occurrence: None)
  Receive Date: 20080814
  Receipt Date: 20080804
  Transmission Date: 20090109
  Serious: Yes (Death, Other)
  Sender: FDA-Public Use
  Company Number: GB-PFIZER INC-2008067398

PATIENT

DRUGS (4)
  1. NELFINAVIR MESILATE [Suspect]
     Indication: PANCREATIC CARCINOMA
     Route: 048
  2. NELFINAVIR MESILATE [Suspect]
  3. CISPLATIN [Suspect]
     Indication: PANCREATIC CARCINOMA
     Dosage: DAILY DOSE:30MG/M2
  4. GEMCITABINE [Suspect]
     Indication: PANCREATIC CARCINOMA
     Dosage: DAILY DOSE:300MG/M2

REACTIONS (8)
  - CHOLECYSTITIS [None]
  - INFECTION [None]
  - LEUKOPENIA [None]
  - METASTASES TO PERITONEUM [None]
  - NEUTROPENIA [None]
  - PANCREATIC CARCINOMA [None]
  - THROMBOCYTOPENIA [None]
  - VOMITING [None]
